FAERS Safety Report 19985319 (Version 1)
Quarter: 2021Q4

REPORT INFORMATION
  Report Type: Spontaneous
  Country: US (occurrence: US)
  Receive Date: 20211022
  Receipt Date: 20211022
  Transmission Date: 20220303
  Serious: Yes (Life-Threatening, Hospitalization)
  Sender: FDA-Public Use
  Company Number: US-MYLANLABS-2021M1074462

PATIENT
  Age: 71 Year
  Sex: Male

DRUGS (1)
  1. WARFARIN [Suspect]
     Active Substance: WARFARIN
     Indication: Atrial flutter
     Dosage: UNK
     Route: 065

REACTIONS (4)
  - Pericardial haemorrhage [Recovering/Resolving]
  - Cardiac arrest [Recovering/Resolving]
  - Cardiac tamponade [Recovering/Resolving]
  - Nephropathy [Recovering/Resolving]
